FAERS Safety Report 4755878-9 (Version None)
Quarter: 2005Q3

REPORT INFORMATION
  Report Type: 
  Country: None (occurrence: None)
  Receive Date: 20050830
  Receipt Date: 20050708
  Transmission Date: 20060218
  Serious: No
  Sender: FDA-Public Use
  Company Number: US-BRISTOL-MYERS SQUIBB COMPANY-13030176

PATIENT
  Sex: Female
  Weight: 77 kg

DRUGS (9)
  1. ERBITUX [Suspect]
     Indication: RECTAL CANCER
     Route: 042
  2. KYTRIL [Concomitant]
     Indication: PREMEDICATION
     Route: 042
  3. BENADRYL [Concomitant]
     Indication: PREMEDICATION
     Route: 042
  4. CIMETIDINE [Concomitant]
     Indication: PREMEDICATION
     Route: 042
  5. SOLU-MEDROL [Concomitant]
     Indication: PREMEDICATION
     Route: 042
  6. CAMPTOSAR [Concomitant]
  7. OXYCODONE [Concomitant]
  8. COLACE [Concomitant]
  9. K-DUR 10 [Concomitant]

REACTIONS (2)
  - FATIGUE [None]
  - RASH [None]
